FAERS Safety Report 8461782-5 (Version None)
Quarter: 2012Q2

REPORT INFORMATION
  Report Type: 
  Country: None (occurrence: None)
  Receive Date: 20120625
  Receipt Date: 20120615
  Transmission Date: 20120825
  Serious: Yes (Hospitalization)
  Sender: FDA-Public Use
  Company Number: US-BAYER-2010-002179

PATIENT
  Age: 53 Year
  Sex: Female
  Weight: 91 kg

DRUGS (13)
  1. YASMIN [Suspect]
     Indication: PRODUCT USED FOR UNKNOWN INDICATION
     Dosage: UNK
     Dates: start: 20010601
  2. MOBIC [Concomitant]
     Dosage: 7.5 MG, QD
     Route: 048
     Dates: start: 20020208
  3. ADVAIR DISKUS 100/50 [Concomitant]
     Dosage: 100/50, ORAL INHALED
     Route: 045
     Dates: start: 20020516
  4. CELEXA [Concomitant]
     Dosage: UNK
     Route: 048
     Dates: start: 20020516
  5. LIPITOR [Concomitant]
     Dosage: UNK
     Route: 048
     Dates: start: 20020516
  6. ALLEGRA-D [FEXOFENADINE HYDROCHLORIDE,PSEUDOEPHEDRINE HYDROCHLORID [Concomitant]
     Dosage: TWICE A DAY AS NEEDED
     Route: 048
     Dates: start: 20020423
  7. ACIPHEX [Concomitant]
     Dosage: UNK
     Route: 048
     Dates: start: 20020516
  8. SEREVENT [Concomitant]
     Dosage: UNK, ORAL INHALED
     Dates: start: 20020516
  9. MACROBID [Concomitant]
     Dosage: 1 TWICE A DAY FOR 7 DAYS
     Route: 048
     Dates: start: 20020304
  10. SYNTHROID [Concomitant]
     Dosage: UNK
     Dates: start: 20050301
  11. CENTRUM [Concomitant]
     Dosage: UNK UNK, QD
  12. MOBIC [Concomitant]
     Dosage: UNK
     Dates: start: 20020516
  13. PROVENTIL [Concomitant]
     Dosage: 2 PUFFS EVERY 4 HOURS AS  NEEDED               ORAL INHALED
     Dates: start: 20020516

REACTIONS (2)
  - STRESS [None]
  - PULMONARY EMBOLISM [None]
